FAERS Safety Report 6242608-7 (Version None)
Quarter: 2009Q2

REPORT INFORMATION
  Report Type: 
  Country: None (occurrence: None)
  Receive Date: 20090617
  Receipt Date: 20080602
  Transmission Date: 20091009
  Serious: No
  Sender: FDA-Public Use
  Company Number: 275918

PATIENT
  Age: 69 Year
  Sex: Female

DRUGS (4)
  1. LEVEMIR [Suspect]
     Indication: INSULIN-REQUIRING TYPE 2 DIABETES MELLITUS
     Dosage: 6 IU, QD, SUBCUTANEOUS ; 12 IU, QD, SUBCUTANEOUS ; 14 IU, QD, SUBCUTANEOUS
     Route: 058
     Dates: start: 20080523, end: 20080526
  2. LEVEMIR [Suspect]
     Indication: INSULIN-REQUIRING TYPE 2 DIABETES MELLITUS
     Dosage: 6 IU, QD, SUBCUTANEOUS ; 12 IU, QD, SUBCUTANEOUS ; 14 IU, QD, SUBCUTANEOUS
     Route: 058
     Dates: start: 20080527, end: 20080530
  3. LEVEMIR [Suspect]
     Indication: INSULIN-REQUIRING TYPE 2 DIABETES MELLITUS
     Dosage: 6 IU, QD, SUBCUTANEOUS ; 12 IU, QD, SUBCUTANEOUS ; 14 IU, QD, SUBCUTANEOUS
     Route: 058
     Dates: start: 20080531
  4. BYETTA (EXENATIDE, EXENATIDE) [Concomitant]

REACTIONS (2)
  - BACK PAIN [None]
  - BREAST PAIN [None]
